FAERS Safety Report 8610906-5 (Version None)
Quarter: 2012Q3

REPORT INFORMATION
  Report Type: 
  Country: None (occurrence: None)
  Receive Date: 20120822
  Receipt Date: 20120809
  Transmission Date: 20120928
  Serious: Yes (Hospitalization, Other)
  Sender: FDA-Public Use
  Company Number: US-ELI_LILLY_AND_COMPANY-US201208003204

PATIENT
  Age: 47 Year
  Sex: Female

DRUGS (5)
  1. STRATTERA [Suspect]
     Indication: ATTENTION DEFICIT/HYPERACTIVITY DISORDER
     Dosage: 18 MG, UNK
  2. STRATTERA [Suspect]
     Dosage: 25 MG, UNK
  3. PROZAC [Suspect]
     Indication: DEPRESSION
     Dosage: 20 MG, UNK
  4. LEXAPRO [Concomitant]
  5. PROZAC [Suspect]
     Dosage: 40 MG, UNK

REACTIONS (7)
  - AGITATION [None]
  - DRUG INTERACTION [None]
  - SEROTONIN SYNDROME [None]
  - DEPRESSION [None]
  - ANXIETY [None]
  - HEADACHE [None]
  - HYPERTENSION [None]
